FAERS Safety Report 5454098-2 (Version None)
Quarter: 2007Q3

REPORT INFORMATION
  Report Type: 
  Country: None (occurrence: None)
  Receive Date: 20070917
  Receipt Date: 20070330
  Transmission Date: 20080115
  Serious: Yes (Other)
  Sender: FDA-Public Use
  Company Number: US-ASTRAZENECA-2006UW11024

PATIENT
  Sex: Female
  Weight: 68.2 kg

DRUGS (6)
  1. SEROQUEL [Suspect]
     Indication: SCHIZOPHRENIA
     Route: 048
     Dates: start: 20030101, end: 20060101
  2. HALDOL [Concomitant]
     Dates: start: 20020101
  3. RISPERDAL [Concomitant]
  4. THORAZINE [Concomitant]
     Dates: start: 19980101
  5. TRILAFON [Concomitant]
     Dates: start: 20030101, end: 20060101
  6. ZYPREXA [Concomitant]

REACTIONS (3)
  - NEUROLEPTIC MALIGNANT SYNDROME [None]
  - PANCREATITIS [None]
  - TYPE 2 DIABETES MELLITUS [None]
